FAERS Safety Report 11421788 (Version 2)
Quarter: 2015Q3

REPORT INFORMATION
  Report Type: Spontaneous
  Country: BR (occurrence: BR)
  Receive Date: 20150827
  Receipt Date: 20150902
  Transmission Date: 20151125
  Serious: Yes (Life-Threatening, Other)
  Sender: FDA-Public Use
  Company Number: BR-AMGEN-BRASP2013033350

PATIENT
  Age: 59 Year
  Sex: Female
  Weight: 42 kg

DRUGS (3)
  1. METHOTREXATE [Concomitant]
     Active Substance: METHOTREXATE
     Dosage: 2.5 MG, UNK
  2. PREDNISONE. [Concomitant]
     Active Substance: PREDNISONE
     Dosage: 5 MG, UNK
  3. ENBREL [Suspect]
     Active Substance: ETANERCEPT
     Indication: RHEUMATOID ARTHRITIS
     Dosage: 50 MG, ONCE WEEKLY
     Route: 058
     Dates: start: 201208, end: 201312

REACTIONS (7)
  - Weight decreased [Unknown]
  - Hepatitis [Unknown]
  - Arthralgia [Not Recovered/Not Resolved]
  - Tuberculosis [Unknown]
  - Joint swelling [Not Recovered/Not Resolved]
  - Sensitivity to weather change [Unknown]
  - Malaise [Unknown]

NARRATIVE: CASE EVENT DATE: 2013
